FAERS Safety Report 14038486 (Version 2)
Quarter: 2017Q4

REPORT INFORMATION
  Report Type: Other
  Country: US (occurrence: US)
  Receive Date: 20171004
  Receipt Date: 20171106
  Transmission Date: 20180321
  Serious: Yes (Hospitalization)
  Sender: FDA-Public Use
  Company Number: US-ACORDA-ACO_139571_2017

PATIENT
  Age: 55 Year
  Sex: Female
  Weight: 56.69 kg

DRUGS (5)
  1. TRAMADOL. [Concomitant]
     Active Substance: TRAMADOL
     Indication: PRODUCT USED FOR UNKNOWN INDICATION
     Dosage: 50 MG, UNK
     Route: 065
     Dates: start: 20170617
  2. AMPYRA [Suspect]
     Active Substance: DALFAMPRIDINE
     Indication: MULTIPLE SCLEROSIS
     Dosage: 10 MG, BID
     Route: 048
     Dates: start: 20170505
  3. AMPYRA [Suspect]
     Active Substance: DALFAMPRIDINE
     Indication: GAIT DISTURBANCE
     Dosage: 10 MG, BID
     Route: 048
     Dates: end: 20170430
  4. BACLOFEN. [Concomitant]
     Active Substance: BACLOFEN
     Indication: PRODUCT USED FOR UNKNOWN INDICATION
     Dosage: 10 MG, UNK
     Route: 065
     Dates: start: 20170919
  5. COPAXONE [Concomitant]
     Active Substance: GLATIRAMER ACETATE
     Indication: PRODUCT USED FOR UNKNOWN INDICATION
     Dosage: 40 MG/ML, TIW
     Route: 058
     Dates: start: 20170927

REACTIONS (26)
  - Laceration [Unknown]
  - Muscle spasms [Unknown]
  - Physical disability [Unknown]
  - Arthralgia [Unknown]
  - Skin abrasion [Unknown]
  - Nocturia [Unknown]
  - Temperature intolerance [Unknown]
  - Dysstasia [Unknown]
  - Micturition urgency [Unknown]
  - Asthenia [Unknown]
  - Dizziness [Unknown]
  - Fall [Recovered/Resolved]
  - Blood calcium decreased [Unknown]
  - Muscular weakness [Recovering/Resolving]
  - Anaemia [Unknown]
  - Hyperreflexia [Unknown]
  - Condition aggravated [Unknown]
  - Fatigue [Unknown]
  - Walking aid user [Unknown]
  - Urine analysis abnormal [Unknown]
  - Hypoaesthesia [Recovering/Resolving]
  - Blood creatine phosphokinase increased [Unknown]
  - Vision blurred [Unknown]
  - Hip fracture [Recovering/Resolving]
  - White blood cell disorder [Recovered/Resolved]
  - Paraesthesia [Unknown]

NARRATIVE: CASE EVENT DATE: 20170430
